FAERS Safety Report 17263094 (Version 1)
Quarter: 2020Q1

REPORT INFORMATION
  Report Type: Spontaneous
  Country: US (occurrence: US)
  Receive Date: 20200111
  Receipt Date: 20200111
  Transmission Date: 20200409
  Serious: No
  Sender: FDA-Public Use
  Company Number: None

PATIENT
  Age: 32 Year
  Sex: Male
  Weight: 74.25 kg

DRUGS (3)
  1. NORTRIPTYLINE 10-20MG BEFORE BEDTIME [Concomitant]
  2. LYRICA [Concomitant]
     Active Substance: PREGABALIN
  3. CIPROFLOXACIN (FLUOROQUINOLONES) [Suspect]
     Active Substance: CIPROFLOXACIN
     Indication: UPPER RESPIRATORY TRACT INFECTION
     Route: 048

REACTIONS (7)
  - Musculoskeletal disorder [None]
  - Neuropathy peripheral [None]
  - Gastrointestinal disorder [None]
  - Autonomic neuropathy [None]
  - Nervous system disorder [None]
  - Mitochondrial cytopathy [None]
  - Muscular weakness [None]

NARRATIVE: CASE EVENT DATE: 20150101
